FAERS Safety Report 17062627 (Version 1)
Quarter: 2019Q4

REPORT INFORMATION
  Report Type: Spontaneous
  Country: BA (occurrence: BA)
  Receive Date: 20191122
  Receipt Date: 20191122
  Transmission Date: 20200122
  Serious: Yes (Hospitalization)
  Sender: FDA-Public Use
  Company Number: BA-TEVA-2019-BA-1139262

PATIENT
  Age: 51 Year
  Sex: Female

DRUGS (4)
  1. CORVITOL TBL [Concomitant]
  2. LETROX 50 MG [Concomitant]
  3. SUMAMED [Suspect]
     Active Substance: AZITHROMYCIN ANHYDROUS
     Dosage: 500 MILLIGRAM DAILY;
     Route: 048
  4. ASPIRIN TBL [Concomitant]

REACTIONS (3)
  - Purpura [Recovering/Resolving]
  - Thrombocytopenia [Recovering/Resolving]
  - Immune thrombocytopenic purpura [Recovering/Resolving]

NARRATIVE: CASE EVENT DATE: 20191027
